FAERS Safety Report 10235225 (Version 3)
Quarter: 2014Q2

REPORT INFORMATION
  Report Type: Spontaneous
  Country: CN (occurrence: CN)
  Receive Date: 20140613
  Receipt Date: 20140620
  Transmission Date: 20141212
  Serious: Yes (Death, Other)
  Sender: FDA-Public Use
  Company Number: CN-ROCHE-1409950

PATIENT
  Sex: Male
  Weight: 75 kg

DRUGS (4)
  1. AVASTIN [Suspect]
     Indication: METASTASES TO LIVER
     Route: 042
     Dates: start: 20140416
  2. AVASTIN [Suspect]
     Indication: RECTAL CANCER
  3. OXALIPLATIN [Concomitant]
     Indication: METASTASES TO LIVER
     Route: 065
     Dates: start: 20140418
  4. OXALIPLATIN [Concomitant]
     Indication: RECTAL CANCER

REACTIONS (3)
  - Cerebellar haemorrhage [Fatal]
  - Hypertension [Not Recovered/Not Resolved]
  - Coma [Unknown]
